FAERS Safety Report 20206908 (Version 6)
Quarter: 2023Q1

REPORT INFORMATION
  Report Type: Spontaneous
  Country: CA (occurrence: CA)
  Receive Date: 20211220
  Receipt Date: 20230320
  Transmission Date: 20230418
  Serious: Yes (Other)
  Sender: FDA-Public Use
  Company Number: CA-PFIZER INC-2021401288

PATIENT
  Age: 13 Year
  Sex: Female
  Weight: 33 kg

DRUGS (6)
  1. GENOTROPIN [Suspect]
     Active Substance: SOMATROPIN
     Indication: Growth hormone deficiency
     Dosage: 1.4 MG 6 DAYS PER WEEK
     Route: 058
     Dates: start: 20191209, end: 2020
  2. GENOTROPIN [Suspect]
     Active Substance: SOMATROPIN
     Dosage: 1.65 MG 6 DAYS PER WEEK-DISCONTINUED
     Route: 058
     Dates: start: 2020
  3. GENOTROPIN [Suspect]
     Active Substance: SOMATROPIN
     Dosage: 1.6 MG, 6 DAYS PER WEEK
     Route: 058
  4. GENOTROPIN [Suspect]
     Active Substance: SOMATROPIN
     Dosage: 1600 UG, 6 DAYS PER WEEK (STATUS DISCONTINUED)
     Route: 058
  5. GENOTROPIN [Suspect]
     Active Substance: SOMATROPIN
     Dosage: 1800 UG, 6 DAYS PER WEEK
     Route: 058
     Dates: end: 2022
  6. GENOTROPIN [Suspect]
     Active Substance: SOMATROPIN
     Dosage: 1800 UG, 6 DAYS PER WEEK
     Route: 058

REACTIONS (6)
  - Blood alkaline phosphatase increased [Unknown]
  - Blood follicle stimulating hormone increased [Unknown]
  - Therapeutic product effect incomplete [Unknown]
  - Initial insomnia [Not Recovered/Not Resolved]
  - Blood test abnormal [Unknown]
  - Snoring [Unknown]

NARRATIVE: CASE EVENT DATE: 20210729
